FAERS Safety Report 4751421-9 (Version None)
Quarter: 2005Q3

REPORT INFORMATION
  Report Type: 
  Country: None (occurrence: None)
  Receive Date: 20050824
  Receipt Date: 20050812
  Transmission Date: 20060218
  Serious: Yes (Death)
  Sender: FDA-Public Use
  Company Number: 200512659EU

PATIENT
  Age: 62 Year
  Sex: Male

DRUGS (1)
  1. HEPARIN SODIUM [Suspect]
     Indication: AORTIC VALVE STENOSIS
     Dosage: FREQUENCY: CONTINUOUS
     Route: 041
     Dates: start: 20030101, end: 20030101

REACTIONS (6)
  - DEEP VEIN THROMBOSIS [None]
  - HEPARIN-INDUCED THROMBOCYTOPENIA [None]
  - PULMONARY EMBOLISM [None]
  - RENAL FAILURE [None]
  - SHOCK [None]
  - THROMBOCYTOPENIA [None]
